FAERS Safety Report 9525284 (Version 1)
Quarter: 2013Q1

REPORT INFORMATION
  Report Type: Spontaneous
  Country: US (occurrence: None)
  Receive Date: 20130313
  Receipt Date: 20130313
  Transmission Date: 20140127
  Serious: No
  Sender: FDA-Public Use
  Company Number: 1000029644

PATIENT
  Age: 55 Year
  Sex: Female

DRUGS (1)
  1. SAVELLA (MILNACIPRAN HYDROCHLORIDE) (12.5 MILLIGRAM, TABLETS) [Suspect]
     Indication: FIBROMYALGIA
     Dosage: 1 IN 1 D
     Route: 048
     Dates: start: 2011, end: 2011

REACTIONS (5)
  - Nausea [None]
  - Malaise [None]
  - Tremor [None]
  - Headache [None]
  - Abdominal pain upper [None]
